FAERS Safety Report 8381652-0 (Version None)
Quarter: 2012Q2

REPORT INFORMATION
  Report Type: 
  Country: None (occurrence: None)
  Receive Date: 20120524
  Receipt Date: 20120511
  Transmission Date: 20120825
  Serious: No
  Sender: FDA-Public Use
  Company Number: US-ASTRAZENECA-2012SE30521

PATIENT
  Age: 44 Year
  Sex: Female
  Weight: 90.7 kg

DRUGS (4)
  1. OMEPRAZOLE [Concomitant]
  2. BUDESONIDE [Suspect]
     Indication: COLITIS ULCERATIVE
     Dosage: THREE CAPSULES
     Route: 048
     Dates: start: 20120405, end: 20120420
  3. CITALOPRAM [Concomitant]
  4. TEVETEN HCT [Concomitant]

REACTIONS (3)
  - BLOOD GLUCOSE INCREASED [None]
  - GLYCOSYLATED HAEMOGLOBIN INCREASED [None]
  - OFF LABEL USE [None]
